FAERS Safety Report 24682421 (Version 1)
Quarter: 2024Q4

REPORT INFORMATION
  Report Type: Other
  Country: FR (occurrence: FR)
  Receive Date: 20241130
  Receipt Date: 20241130
  Transmission Date: 20250115
  Serious: Yes (Other)
  Sender: INNOGENIX, LLC
  Company Number: FR-Innogenix, LLC-2166224

PATIENT
  Age: 26 Year
  Sex: Female

DRUGS (6)
  1. HALOPERIDOL [Suspect]
     Active Substance: HALOPERIDOL
     Indication: Product used for unknown indication
  2. TIAPRIDE [Concomitant]
     Active Substance: TIAPRIDE
  3. PALIPERIDONE [Concomitant]
     Active Substance: PALIPERIDONE
  4. RISPERIDONE [Concomitant]
     Active Substance: RISPERIDONE
  5. ARIPIPRAZOLE [Concomitant]
     Active Substance: ARIPIPRAZOLE
  6. PIPAMPERONE [Concomitant]
     Active Substance: PIPAMPERONE

REACTIONS (3)
  - Drug-induced liver injury [Unknown]
  - Nausea [Unknown]
  - Vomiting [Unknown]
